FAERS Safety Report 8531145-2 (Version None)
Quarter: 2012Q3

REPORT INFORMATION
  Report Type: 
  Country: None (occurrence: None)
  Receive Date: 20120723
  Receipt Date: 20120712
  Transmission Date: 20120928
  Serious: Yes (Hospitalization)
  Sender: FDA-Public Use
  Company Number: US-BAYER-2012-071552

PATIENT
  Age: 37 Year
  Sex: Female
  Weight: 68.98 kg

DRUGS (9)
  1. MOTRIN [Concomitant]
     Dosage: 800 MG, UNK
     Route: 048
  2. ADVIL [Concomitant]
  3. NEXIUM [Concomitant]
     Route: 048
  4. FLONASE [Concomitant]
     Route: 048
  5. NAPROSYN [Concomitant]
     Route: 048
  6. FLONASE [Concomitant]
  7. YASMIN [Suspect]
  8. DARVOCET-N 50 [Concomitant]
     Dosage: 100 MG, UNK
     Route: 048
  9. NASONEX [Concomitant]
     Route: 045

REACTIONS (3)
  - DEEP VEIN THROMBOSIS [None]
  - THROMBOPHLEBITIS SUPERFICIAL [None]
  - PULMONARY EMBOLISM [None]
